FAERS Safety Report 7161504-4 (Version None)
Quarter: 2010Q4

REPORT INFORMATION
  Report Type: 
  Country: None (occurrence: None)
  Receive Date: 20101215
  Receipt Date: 20101207
  Transmission Date: 20110411
  Serious: Yes (Other)
  Sender: FDA-Public Use
  Company Number: US-PFIZER INC-2010166464

PATIENT
  Sex: Female

DRUGS (2)
  1. LYRICA [Suspect]
     Indication: BACK DISORDER
     Dosage: 50 MG, 2X/DAY
  2. LYRICA [Suspect]
     Indication: SCIATIC NERVE INJURY

REACTIONS (2)
  - DIZZINESS [None]
  - VISION BLURRED [None]
